FAERS Safety Report 25566776 (Version 2)
Quarter: 2025Q3

REPORT INFORMATION
  Report Type: Report from Study
  Country: JP (occurrence: JP)
  Receive Date: 20250716
  Receipt Date: 20250829
  Transmission Date: 20251021
  Serious: Yes (Hospitalization)
  Sender: BIOGEN
  Company Number: JP-BIOGEN-2025BI01316603

PATIENT
  Age: 7 Year
  Sex: Female
  Weight: 7.9 kg

DRUGS (11)
  1. SPINRAZA [Suspect]
     Active Substance: NUSINERSEN
     Indication: Spinal muscular atrophy
     Route: 050
     Dates: start: 20171115
  2. SPINRAZA [Suspect]
     Active Substance: NUSINERSEN
     Route: 050
     Dates: start: 20220614, end: 20230606
  3. HERBAL NOS [Concomitant]
     Active Substance: HERBALS
     Indication: Spinal muscular atrophy
     Route: 050
     Dates: end: 20240104
  4. FENTANYL [Concomitant]
     Active Substance: FENTANYL
     Indication: Anaesthesia procedure
     Route: 050
  5. LIDOCAINE [Concomitant]
     Active Substance: LIDOCAINE
     Indication: Anaesthesia procedure
     Route: 050
  6. XYLOCAINE [Concomitant]
     Active Substance: LIDOCAINE HYDROCHLORIDE
     Indication: Anaesthesia procedure
     Route: 050
  7. PANTETHINE [Concomitant]
     Active Substance: PANTETHINE
     Indication: Spinal muscular atrophy
     Route: 050
  8. CARBOHYDRATES\FATTY ACIDS\MINERALS\PROTEIN\VITAMINS [Concomitant]
     Active Substance: CARBOHYDRATES\FATTY ACIDS\MINERALS\PROTEIN\VITAMINS
     Indication: Spinal muscular atrophy
     Route: 050
  9. HYALURONATE SODIUM [Concomitant]
     Active Substance: HYALURONATE SODIUM
     Indication: Spinal muscular atrophy
     Route: 050
  10. PETROLATUM [Concomitant]
     Active Substance: PETROLATUM
     Indication: Asteatosis
     Route: 050
  11. BISACODYL [Concomitant]
     Active Substance: BISACODYL
     Indication: Spinal muscular atrophy
     Route: 050

REACTIONS (8)
  - Pneumonia [Recovered/Resolved]
  - Bronchitis [Recovered/Resolved]
  - Pneumonia respiratory syncytial viral [Recovered/Resolved]
  - Pneumonia bacterial [Recovered/Resolved]
  - Asthma [Recovered/Resolved]
  - Respiratory syncytial virus infection [Recovered/Resolved]
  - Liver disorder [Recovered/Resolved]
  - Hypophosphataemia [Recovered/Resolved]

NARRATIVE: CASE EVENT DATE: 20220527
